FAERS Safety Report 9351239 (Version 2)
Quarter: 2013Q3

REPORT INFORMATION
  Report Type: Spontaneous
  Country: US (occurrence: US)
  Receive Date: 20130617
  Receipt Date: 20130729
  Transmission Date: 20140515
  Serious: Yes (Other)
  Sender: FDA-Public Use
  Company Number: US-SANOFI-AVENTIS-2013SA060311

PATIENT
  Age: 48 Year
  Sex: Female
  Weight: 66.67 kg

DRUGS (1)
  1. AUBAGIO [Suspect]
     Route: 048
     Dates: start: 201211, end: 20130615

REACTIONS (3)
  - Multiple sclerosis [Recovering/Resolving]
  - Mobility decreased [Recovering/Resolving]
  - Memory impairment [Recovering/Resolving]
